FAERS Safety Report 18305847 (Version 3)
Quarter: 2020Q4

REPORT INFORMATION
  Report Type: Report from Study
  Country: None (occurrence: TR)
  Receive Date: 20200923
  Receipt Date: 20201204
  Transmission Date: 20210113
  Serious: Yes (Death, Hospitalization)
  Sender: FDA-Public Use
  Company Number: TR-ABBVIE-20K-161-3577834-00

PATIENT
  Sex: Male

DRUGS (4)
  1. ZOPROTEC [Concomitant]
     Active Substance: HYDROCHLOROTHIAZIDE\ZOFENOPRIL
     Indication: HYPERTENSION
     Dosage: 1X1
     Route: 048
     Dates: start: 2014
  2. DUODOPA [Suspect]
     Active Substance: CARBIDOPA\LEVODOPA
  3. DUODOPA [Suspect]
     Active Substance: CARBIDOPA\LEVODOPA
     Indication: PARKINSON^S DISEASE
     Dosage: MORNING DOSE (ML): 7.90 CONTINUOUS DOSE (ML): 5.40 EXTRA DOSE (ML): 2.00
     Route: 050
     Dates: start: 20150309
  4. PK-MERZ [Concomitant]
     Active Substance: AMANTADINE
     Indication: PARKINSON^S DISEASE
     Dosage: 3X1
     Route: 048
     Dates: start: 2013

REACTIONS (3)
  - Sepsis [Fatal]
  - Nosocomial infection [Fatal]
  - COVID-19 [Recovered/Resolved]
